FAERS Safety Report 7536268-2 (Version None)
Quarter: 2011Q2

REPORT INFORMATION
  Report Type: 
  Country: None (occurrence: None)
  Receive Date: 20110609
  Receipt Date: 20110531
  Transmission Date: 20111010
  Serious: Yes (Other)
  Sender: FDA-Public Use
  Company Number: FR-ASTRAZENECA-2011SE34066

PATIENT
  Age: 70 Year
  Sex: Male

DRUGS (3)
  1. RAMIPRIL [Concomitant]
  2. TAMSULOSINE [Concomitant]
  3. IRESSA [Suspect]
     Indication: LUNG NEOPLASM MALIGNANT
     Route: 048
     Dates: start: 20110201

REACTIONS (3)
  - RASH ERYTHEMATOUS [None]
  - CYTOLYTIC HEPATITIS [None]
  - ORAL DISORDER [None]
